FAERS Safety Report 6998420-4 (Version None)
Quarter: 2010Q3

REPORT INFORMATION
  Report Type: 
  Country: None (occurrence: None)
  Receive Date: 20100920
  Receipt Date: 20100908
  Transmission Date: 20110219
  Serious: Yes (Hospitalization)
  Sender: FDA-Public Use
  Company Number: CA-JNJFOC-20100902218

PATIENT
  Sex: Male
  Weight: 108.2 kg

DRUGS (7)
  1. REMICADE [Suspect]
     Indication: CROHN'S DISEASE
     Route: 042
  2. REMICADE [Suspect]
     Route: 042
  3. CYMBALTA [Concomitant]
  4. METHOTREXATE [Concomitant]
     Route: 058
  5. PREDNISONE [Concomitant]
     Route: 048
  6. DESYREL [Concomitant]
  7. ZYPREXA [Concomitant]

REACTIONS (4)
  - ABDOMINAL PAIN [None]
  - ANAL ABSCESS [None]
  - DEPRESSION [None]
  - DIARRHOEA [None]
